FAERS Safety Report 4951661-X (Version None)
Quarter: 2006Q1

REPORT INFORMATION
  Report Type: 
  Country: None (occurrence: None)
  Receive Date: 20060320
  Receipt Date: 20060228
  Transmission Date: 20060701
  Serious: No
  Sender: FDA-Public Use
  Company Number: 06H-087-0304702-00

PATIENT
  Age: 13 Year
  Sex: Female
  Weight: 36 kg

DRUGS (10)
  1. PRECEDEX [Suspect]
     Indication: SEDATION
     Dosage: INTRAVENOUS
     Route: 042
     Dates: start: 20051227, end: 20051229
  2. FAMOTIDINE [Suspect]
     Indication: PROPHYLAXIS
     Dosage: INTRAVENOUS
     Route: 042
     Dates: start: 20051222, end: 20051229
  3. FAMOTIDINE [Suspect]
     Indication: ULCER
     Dosage: INTRAVENOUS
     Route: 042
     Dates: start: 20051222, end: 20051229
  4. GABEXATE MESILATE (GABEXATE MESILATE) [Suspect]
     Indication: DISSEMINATED INTRAVASCULAR COAGULATION
     Dosage: INTRAVENOUS
     Route: 042
     Dates: start: 20051221, end: 20051229
  5. FUROSEMIDE [Concomitant]
  6. ANITHROMBIN III (ANITHROMBIN III) [Concomitant]
  7. MIDAZOLAM HCL [Concomitant]
  8. PROPOFOL [Concomitant]
  9. SIVELESTAT SODIUM HYDRATE [Concomitant]
  10. PANIPENEM BETAMIPRON [Concomitant]

REACTIONS (3)
  - ALANINE AMINOTRANSFERASE INCREASED [None]
  - ASPARTATE AMINOTRANSFERASE INCREASED [None]
  - LIVER DISORDER [None]
